FAERS Safety Report 6147269-3 (Version None)
Quarter: 2009Q2

REPORT INFORMATION
  Report Type: 
  Country: None (occurrence: None)
  Receive Date: 20090408
  Receipt Date: 20090329
  Transmission Date: 20091009
  Serious: Yes (Other)
  Sender: FDA-Public Use
  Company Number: CA-JNJFOC-20090306223

PATIENT
  Age: 37 Year
  Sex: Male
  Weight: 90.72 kg

DRUGS (4)
  1. INVEGA [Suspect]
     Indication: BIPOLAR DISORDER
     Route: 048
     Dates: start: 20090313, end: 20090325
  2. INVEGA [Suspect]
     Indication: HYPOMANIA
     Route: 048
     Dates: start: 20090313, end: 20090325
  3. EPIVAL [Concomitant]
  4. SEROQUEL [Concomitant]

REACTIONS (2)
  - AKATHISIA [None]
  - PANIC ATTACK [None]
